FAERS Safety Report 4870566-6 (Version None)
Quarter: 2006Q1

REPORT INFORMATION
  Report Type: 
  Country: None (occurrence: None)
  Receive Date: 20060103
  Receipt Date: 20051225
  Transmission Date: 20060701
  Serious: Yes (Other)
  Sender: FDA-Public Use
  Company Number: PHBS2005IL19004

PATIENT
  Age: 80 Year
  Sex: Female

DRUGS (3)
  1. DIOVAN [Suspect]
     Indication: HYPERTENSION
     Dosage: 80 MG/DAY
     Route: 048
  2. NORMITEN [Concomitant]
  3. DISOTHIAZIDE [Concomitant]

REACTIONS (4)
  - ANAEMIA [None]
  - PNEUMONIA [None]
  - PURPURA [None]
  - RENAL IMPAIRMENT [None]
